FAERS Safety Report 6292183-6 (Version None)
Quarter: 2009Q3

REPORT INFORMATION
  Report Type: 
  Country: None (occurrence: None)
  Receive Date: 20090731
  Receipt Date: 20090722
  Transmission Date: 20100115
  Serious: Yes (Other)
  Sender: FDA-Public Use
  Company Number: US-JNJFOC-20090708857

PATIENT

DRUGS (1)
  1. RISPERDAL CONSTA [Suspect]
     Indication: ACCIDENTAL NEEDLE STICK
     Route: 065

REACTIONS (1)
  - EXPOSURE TO CONTAMINATED DEVICE [None]
